FAERS Safety Report 19783941 (Version 1)
Quarter: 2021Q3

REPORT INFORMATION
  Report Type: Spontaneous
  Country: US (occurrence: US)
  Receive Date: 20210903
  Receipt Date: 20210903
  Transmission Date: 20211014
  Serious: Yes (Other)
  Sender: FDA-Public Use
  Company Number: US-BECTON DICKINSON FRANCE-US-BD-20-007597

PATIENT
  Sex: Female
  Weight: 48.1 kg

DRUGS (3)
  1. REMODULIN [Suspect]
     Active Substance: TREPROSTINIL
     Indication: PULMONARY ARTERIAL HYPERTENSION
     Dosage: 0.020 MICROGRAM/KILOGRAM
     Route: 041
     Dates: start: 20200608
  2. REMODULIN [Suspect]
     Active Substance: TREPROSTINIL
     Dosage: 0.022 MICROGRAM/KILOGRAM
     Dates: start: 2020
  3. CHLORAPREP [Suspect]
     Active Substance: CHLORHEXIDINE GLUCONATE\ISOPROPYL ALCOHOL
     Indication: PRODUCT USED FOR UNKNOWN INDICATION
     Dosage: UNK
     Route: 061

REACTIONS (12)
  - Dyspepsia [Unknown]
  - Drug hypersensitivity [Unknown]
  - Alopecia [Unknown]
  - Gait disturbance [Unknown]
  - Scleroderma [Unknown]
  - Pain in extremity [Unknown]
  - Temperature intolerance [Unknown]
  - Joint swelling [Unknown]
  - Dysphagia [Unknown]
  - Arthralgia [Unknown]
  - Injection site pruritus [Unknown]
  - Dermatitis contact [Unknown]

NARRATIVE: CASE EVENT DATE: 2020
